FAERS Safety Report 8610120 (Version 14)
Quarter: 2015Q3

REPORT INFORMATION
  Report Type: Spontaneous
  Country: US (occurrence: US)
  Receive Date: 20120612
  Receipt Date: 20150720
  Transmission Date: 20151125
  Serious: Yes (Hospitalization, Other)
  Sender: FDA-Public Use
  Company Number: US-SANOFI-AVENTIS-2011SA048596

PATIENT
  Age: 70 Year
  Sex: Male
  Weight: 100 kg

DRUGS (24)
  1. COREG [Concomitant]
     Active Substance: CARVEDILOL
     Indication: BLOOD PRESSURE MEASUREMENT
     Route: 048
  2. NITROGLYCERINE [Concomitant]
     Active Substance: NITROGLYCERIN
     Route: 060
  3. PLAVIX [Suspect]
     Active Substance: CLOPIDOGREL BISULFATE
     Indication: CEREBROVASCULAR ACCIDENT PROPHYLAXIS
     Route: 048
     Dates: start: 20070310, end: 20080804
  4. ASPIRIN. [Concomitant]
     Active Substance: ASPIRIN
     Route: 048
  5. SPIRONOLACTONE. [Concomitant]
     Active Substance: SPIRONOLACTONE
  6. POTASSIUM CHLORIDE. [Concomitant]
     Active Substance: POTASSIUM CHLORIDE
  7. LUMIGAN [Concomitant]
     Active Substance: BIMATOPROST
     Route: 047
  8. OMEPRAZOLE. [Concomitant]
     Active Substance: OMEPRAZOLE
     Indication: GASTROOESOPHAGEAL REFLUX DISEASE
  9. COREG [Concomitant]
     Active Substance: CARVEDILOL
     Indication: BLOOD PRESSURE MEASUREMENT
     Route: 048
  10. LOSARTAN. [Concomitant]
     Active Substance: LOSARTAN
     Indication: BLOOD PRESSURE MEASUREMENT
  11. CARVEDILOL. [Concomitant]
     Active Substance: CARVEDILOL
     Indication: CARDIAC DISORDER
  12. POTASSIUM [Concomitant]
     Active Substance: POTASSIUM
  13. FUROSEMIDE. [Concomitant]
     Active Substance: FUROSEMIDE
     Indication: FLUID IMBALANCE
     Route: 048
  14. PLAVIX [Suspect]
     Active Substance: CLOPIDOGREL BISULFATE
     Indication: CARDIAC FAILURE CONGESTIVE
     Route: 048
     Dates: start: 20070310, end: 20080804
  15. COZAAR [Concomitant]
     Active Substance: LOSARTAN POTASSIUM
     Route: 048
  16. LEVAQUIN [Concomitant]
     Active Substance: LEVOFLOXACIN
  17. LIPITOR [Concomitant]
     Active Substance: ATORVASTATIN CALCIUM
  18. PLAVIX [Suspect]
     Active Substance: CLOPIDOGREL BISULFATE
     Indication: PROPHYLAXIS
     Route: 048
     Dates: start: 20070310, end: 20080804
  19. VENTOLIN [Concomitant]
     Active Substance: ALBUTEROL SULFATE
     Dosage: INHALTION AEROSOL SOLUTION,INHALE 2 PUFFS EVERY 4 HOURS AS NEEDED
     Route: 055
  20. COMBIVENT [Concomitant]
     Active Substance: ALBUTEROL SULFATE\IPRATROPIUM BROMIDE
     Dosage: INHALATION AEROSOL;INFIALE 2 PLTFFS EVERY 4-6 HOUTRS AS NEEDED.;
     Route: 055
  21. ASA [Concomitant]
     Active Substance: ASPIRIN
  22. METOPROLOL [Concomitant]
     Active Substance: METOPROLOL
  23. LISINOPRIL. [Concomitant]
     Active Substance: LISINOPRIL
     Route: 048
  24. LASIX [Concomitant]
     Active Substance: FUROSEMIDE
     Indication: FLUID IMBALANCE
     Route: 048

REACTIONS (16)
  - Hemiparesis [Unknown]
  - Blood urea increased [Unknown]
  - Coronary artery occlusion [Unknown]
  - Balance disorder [Unknown]
  - Chest pain [Recovered/Resolved]
  - Headache [Recovered/Resolved]
  - Gait disturbance [Unknown]
  - Respiratory tract congestion [Unknown]
  - Fatigue [Recovered/Resolved]
  - Hypertension [Unknown]
  - Haemorrhagic stroke [Recovered/Resolved]
  - Proteinuria [Unknown]
  - Cough [Unknown]
  - Dysarthria [Unknown]
  - Nervous system disorder [Unknown]
  - Pain in extremity [Unknown]

NARRATIVE: CASE EVENT DATE: 20071024
